FAERS Safety Report 18846787 (Version 1)
Quarter: 2021Q1

REPORT INFORMATION
  Report Type: Report from Study
  Country: US (occurrence: US)
  Receive Date: 20210203
  Receipt Date: 20210203
  Transmission Date: 20210419
  Serious: No
  Sender: FDA-Public Use
  Company Number: US-EXELIXIS-CABO-20027335

PATIENT
  Sex: Male

DRUGS (1)
  1. CABOMETYX [Suspect]
     Active Substance: CABOZANTINIB S-MALATE
     Indication: RENAL CELL CARCINOMA
     Dosage: 40 MG, QD (AM WITHOUT FOOD)
     Route: 048
     Dates: start: 201909, end: 202005

REACTIONS (9)
  - Vomiting [Not Recovered/Not Resolved]
  - Blood pressure increased [Recovering/Resolving]
  - Dehydration [Unknown]
  - Flatulence [Not Recovered/Not Resolved]
  - Fatigue [Unknown]
  - Blood creatinine increased [Recovering/Resolving]
  - Renal impairment [Unknown]
  - Diarrhoea [Not Recovered/Not Resolved]
  - Insomnia [Not Recovered/Not Resolved]
